FAERS Safety Report 24723104 (Version 1)
Quarter: 2024Q4

REPORT INFORMATION
  Report Type: Spontaneous
  Country: AU (occurrence: AU)
  Receive Date: 20241211
  Receipt Date: 20241211
  Transmission Date: 20250115
  Serious: Yes (Hospitalization)
  Sender: ELI LILLY AND COMPANY
  Company Number: AU-ELI_LILLY_AND_COMPANY-AU202411019600

PATIENT
  Age: 45 Year
  Sex: Male

DRUGS (1)
  1. TIRZEPATIDE [Suspect]
     Active Substance: TIRZEPATIDE
     Indication: Product used for unknown indication
     Dosage: 15 MG, UNKNOWN
     Route: 058

REACTIONS (2)
  - Gastrointestinal disorder [Recovering/Resolving]
  - Accidental overdose [Recovering/Resolving]
